FAERS Safety Report 7906497-4 (Version None)
Quarter: 2011Q4

REPORT INFORMATION
  Report Type: 
  Country: None (occurrence: None)
  Receive Date: 20111110
  Receipt Date: 20111102
  Transmission Date: 20120403
  Serious: Yes (Hospitalization, Other)
  Sender: FDA-Public Use
  Company Number: ZA-JNJFOC-20111101380

PATIENT
  Age: 2 Year
  Sex: Male

DRUGS (1)
  1. DURAGESIC-100 [Suspect]
     Indication: EAR PAIN
     Route: 023

REACTIONS (4)
  - RESPIRATORY DEPRESSION [None]
  - DRUG DIVERSION [None]
  - SOMNOLENCE [None]
  - OFF LABEL USE [None]
